FAERS Safety Report 8270416-4 (Version None)
Quarter: 2012Q2

REPORT INFORMATION
  Report Type: 
  Country: None (occurrence: None)
  Receive Date: 20120405
  Receipt Date: 20120326
  Transmission Date: 20120825
  Serious: Yes (Other)
  Sender: FDA-Public Use
  Company Number: 2012P1011296

PATIENT
  Age: 25 Year
  Sex: Female

DRUGS (1)
  1. RISPERIDONE [Suspect]
     Indication: SCHIZOPHRENIA
     Dosage: 3 MG; QD
     Dates: start: 20100101

REACTIONS (6)
  - JOINT DISLOCATION [None]
  - AFFECTIVE DISORDER [None]
  - SOCIAL AVOIDANT BEHAVIOUR [None]
  - PROTRUSION TONGUE [None]
  - APATHY [None]
  - DYSTONIA [None]
